FAERS Safety Report 15591451 (Version 1)
Quarter: 2018Q4

REPORT INFORMATION
  Report Type: Spontaneous
  Country: US (occurrence: US)
  Receive Date: 20181106
  Receipt Date: 20181106
  Transmission Date: 20190205
  Serious: No
  Sender: FDA-Public Use
  Company Number: US-PFIZER INC-2018438209

PATIENT
  Age: 55 Year
  Sex: Female
  Weight: 81.19 kg

DRUGS (1)
  1. NEOSPORIN [Suspect]
     Active Substance: BACITRACIN ZINC\NEOMYCIN SULFATE\POLYMYXIN B SULFATE
     Indication: RASH
     Dosage: UNK

REACTIONS (2)
  - Expired product administered [Unknown]
  - Burning sensation [Unknown]
